FAERS Safety Report 10719376 (Version 1)
Quarter: 2015Q1

REPORT INFORMATION
  Report Type: Spontaneous
  Country: US (occurrence: US)
  Receive Date: 20150119
  Receipt Date: 20150119
  Transmission Date: 20150721
  Serious: No
  Sender: FDA-Public Use
  Company Number: US-UNITED THERAPEUTICS-UNT-2014-003842

PATIENT
  Age: 56 Year
  Sex: Female
  Weight: 80.73 kg

DRUGS (2)
  1. TYVASO [Suspect]
     Active Substance: TREPROSTINIL
     Indication: COR PULMONALE CHRONIC
     Dosage: 18-54 MICROGRAMS, QID
     Dates: start: 20140623, end: 20140809
  2. REVATIO [Concomitant]
     Active Substance: SILDENAFIL CITRATE
     Indication: PRODUCT USED FOR UNKNOWN INDICATION

REACTIONS (9)
  - Malaise [Unknown]
  - Dizziness [Unknown]
  - Hypotension [Unknown]
  - Cough [Not Recovered/Not Resolved]
  - Myalgia [Unknown]
  - Painful respiration [Unknown]
  - Dyspnoea [Unknown]
  - Diarrhoea [Not Recovered/Not Resolved]
  - Asthenia [Not Recovered/Not Resolved]

NARRATIVE: CASE EVENT DATE: 2014
